FAERS Safety Report 6740805-5 (Version None)
Quarter: 2010Q2

REPORT INFORMATION
  Report Type: 
  Country: None (occurrence: None)
  Receive Date: 20100525
  Receipt Date: 20100525
  Transmission Date: 20101027
  Serious: Yes (Hospitalization)
  Sender: FDA-Public Use
  Company Number: None

PATIENT
  Sex: Female
  Weight: 66.4 kg

DRUGS (2)
  1. CARBOPLATIN [Suspect]
     Dosage: 628 MG
     Dates: end: 20081027
  2. TAXOL [Suspect]
     Dosage: 296 MG
     Dates: end: 20081027

REACTIONS (13)
  - ABDOMINAL DISTENSION [None]
  - ABDOMINAL PAIN [None]
  - BACK PAIN [None]
  - BLOOD ALBUMIN DECREASED [None]
  - BLOOD SODIUM DECREASED [None]
  - CONSTIPATION [None]
  - DECREASED APPETITE [None]
  - DIARRHOEA [None]
  - FLATULENCE [None]
  - HAEMOGLOBIN DECREASED [None]
  - HUNGER [None]
  - NAUSEA [None]
  - VOMITING [None]
